FAERS Safety Report 9335447 (Version 1)
Quarter: 2013Q2

REPORT INFORMATION
  Report Type: Spontaneous
  Country: CN (occurrence: CN)
  Receive Date: 20130605
  Receipt Date: 20130605
  Transmission Date: 20140414
  Serious: Yes (Hospitalization, Other)
  Sender: FDA-Public Use
  Company Number: CN-ASTRAZENECA-2013SE40116

PATIENT
  Sex: Female

DRUGS (2)
  1. LOSEC [Suspect]
     Indication: GASTRIC ULCER
     Route: 048
     Dates: start: 20120813, end: 20120815
  2. AMOXICILLIN [Concomitant]

REACTIONS (4)
  - Dyspnoea [Recovering/Resolving]
  - Chest discomfort [Recovering/Resolving]
  - Gastric ulcer [Recovering/Resolving]
  - Drug ineffective [Recovering/Resolving]
